FAERS Safety Report 13933443 (Version 8)
Quarter: 2017Q4

REPORT INFORMATION
  Report Type: Report from Study
  Country: US (occurrence: US)
  Receive Date: 20170904
  Receipt Date: 20171227
  Transmission Date: 20180320
  Serious: Yes (Other)
  Sender: FDA-Public Use
  Company Number: PHEH2017US028173

PATIENT
  Sex: Male

DRUGS (2)
  1. OXCARBAZEPINE. [Suspect]
     Active Substance: OXCARBAZEPINE
     Indication: PRODUCT USED FOR UNKNOWN INDICATION
     Route: 065
  2. TRILEPTAL [Suspect]
     Active Substance: OXCARBAZEPINE
     Indication: PRODUCT USED FOR UNKNOWN INDICATION
     Route: 065

REACTIONS (7)
  - Seizure [Unknown]
  - Ear infection [Unknown]
  - Cerebral disorder [Unknown]
  - Drug intolerance [Unknown]
  - Drug ineffective [Unknown]
  - Malaise [Unknown]
  - Hypersensitivity [Unknown]
